FAERS Safety Report 7163856-8 (Version None)
Quarter: 2010Q4

REPORT INFORMATION
  Report Type: 
  Country: None (occurrence: None)
  Receive Date: 20101215
  Receipt Date: 20100625
  Transmission Date: 20110411
  Serious: Yes (Other)
  Sender: FDA-Public Use
  Company Number: US-PFIZER INC-2010080172

PATIENT
  Sex: Female
  Weight: 70.306 kg

DRUGS (4)
  1. LYRICA [Suspect]
     Indication: NEUROPATHY PERIPHERAL
     Dosage: 100 MG, 1X/DAY
     Dates: start: 20100301
  2. NEURONTIN [Suspect]
     Indication: NEUROPATHY PERIPHERAL
     Dates: start: 20100101, end: 20100101
  3. MULTI-VITAMINS [Concomitant]
     Dosage: UNK
  4. VIVELLE [Concomitant]
     Dosage: UNK
     Route: 062

REACTIONS (3)
  - BLOOD CHROMOGRANIN A INCREASED [None]
  - DRUG INEFFECTIVE [None]
  - NEOPLASM MALIGNANT [None]
